FAERS Safety Report 5786572-3 (Version None)
Quarter: 2008Q2

REPORT INFORMATION
  Report Type: 
  Country: None (occurrence: None)
  Receive Date: 20080624
  Receipt Date: 20070813
  Transmission Date: 20081010
  Serious: No
  Sender: FDA-Public Use
  Company Number: US-ASTRAZENECA-2007UW17937

PATIENT
  Age: 48 Year
  Sex: Female
  Weight: 52.2 kg

DRUGS (3)
  1. PULMICORT FLEXHALER [Suspect]
     Indication: CHRONIC SINUSITIS
     Route: 055
     Dates: start: 20070721
  2. PULMICORT FLEXHALER [Suspect]
     Indication: ASTHMA
     Route: 055
     Dates: start: 20070721
  3. SINGULAIR [Concomitant]

REACTIONS (4)
  - ASTHMA [None]
  - DRUG INEFFECTIVE [None]
  - NASAL CONGESTION [None]
  - RHINORRHOEA [None]
